FAERS Safety Report 24298767 (Version 2)
Quarter: 2024Q3

REPORT INFORMATION
  Report Type: Spontaneous
  Country: PR (occurrence: PR)
  Receive Date: 20240909
  Receipt Date: 20240920
  Transmission Date: 20241017
  Serious: No
  Sender: GUERBET
  Company Number: PR-GUERBET / LLC-PR-20240003

PATIENT
  Age: 81 Year
  Sex: Female
  Weight: 63.5 kg

DRUGS (1)
  1. OPTIRAY 320 [Suspect]
     Active Substance: IOVERSOL
     Indication: Computerised tomogram abdomen
     Dates: start: 20240521, end: 20240521

REACTIONS (1)
  - Vomiting [Recovered/Resolved]

NARRATIVE: CASE EVENT DATE: 20240521
